FAERS Safety Report 14311711 (Version 2)
Quarter: 2018Q1

REPORT INFORMATION
  Report Type: Spontaneous
  Country: FR (occurrence: FR)
  Receive Date: 20171221
  Receipt Date: 20180122
  Transmission Date: 20180509
  Serious: Yes (Life-Threatening, Hospitalization)
  Sender: FDA-Public Use
  Company Number: FR-ROCHE-2042394

PATIENT
  Age: 56 Year
  Sex: Male

DRUGS (2)
  1. CLONAZEPAM. [Suspect]
     Active Substance: CLONAZEPAM
     Indication: EPILEPSY
     Route: 065
  2. ZYPADHERA [Suspect]
     Active Substance: OLANZAPINE PAMOATE
     Indication: SCHIZOPHRENIA
     Route: 065

REACTIONS (9)
  - Dysphagia [Recovered/Resolved]
  - Post-injection delirium sedation syndrome [Recovered/Resolved]
  - Dysarthria [Recovered/Resolved]
  - Respiratory distress [Recovered/Resolved]
  - Hemiparesis [Recovered/Resolved]
  - Asthenia [Recovered/Resolved]
  - Epilepsy [Recovered/Resolved]
  - Dyskinesia [Recovered/Resolved]
  - Coma [Recovered/Resolved]
